FAERS Safety Report 15916711 (Version 1)
Quarter: 2019Q1

REPORT INFORMATION
  Report Type: Report from Study
  Country: CO (occurrence: CO)
  Receive Date: 20190205
  Receipt Date: 20190205
  Transmission Date: 20190417
  Serious: Yes (Hospitalization, Other)
  Sender: FDA-Public Use
  Company Number: CO-BRISTOL-MYERS SQUIBB COMPANY-BMS-2018-109730

PATIENT
  Sex: Female

DRUGS (1)
  1. ABATACEPT [Suspect]
     Active Substance: ABATACEPT
     Indication: PRODUCT USED FOR UNKNOWN INDICATION
     Dosage: 125 MG, QWK
     Route: 058
     Dates: start: 20181010

REACTIONS (6)
  - Ischaemia [Recovering/Resolving]
  - Viral infection [Recovering/Resolving]
  - Dyspnoea [Unknown]
  - Influenza [Unknown]
  - Infarction [Recovering/Resolving]
  - Chest pain [Unknown]
